FAERS Safety Report 13002177 (Version 1)
Quarter: 2016Q4

REPORT INFORMATION
  Report Type: Spontaneous
  Country: JP (occurrence: JP)
  Receive Date: 20161206
  Receipt Date: 20161206
  Transmission Date: 20170207
  Serious: Yes (Hospitalization)
  Sender: FDA-Public Use
  Company Number: JP-GLAXOSMITHKLINE-JP2016JPN176856

PATIENT
  Sex: Male

DRUGS (1)
  1. ZOVIRAX [Suspect]
     Active Substance: ACYCLOVIR
     Indication: HERPES ZOSTER
     Dosage: 250 MG, 1D
     Route: 041

REACTIONS (3)
  - Condition aggravated [Recovered/Resolved]
  - Herpes zoster [Recovered/Resolved]
  - Drug effect incomplete [Unknown]
